FAERS Safety Report 18429356 (Version 1)
Quarter: 2020Q4

REPORT INFORMATION
  Report Type: Spontaneous
  Country: ES (occurrence: ES)
  Receive Date: 20201027
  Receipt Date: 20201027
  Transmission Date: 20210114
  Serious: Yes (Other)
  Sender: FDA-Public Use
  Company Number: ES-AUROBINDO-AUR-APL-2020-053591

PATIENT
  Age: 71 Year
  Sex: Male

DRUGS (5)
  1. METAMIZOLE [Concomitant]
     Active Substance: METAMIZOLE
     Indication: PAIN
     Dosage: UNK
     Route: 042
     Dates: start: 20200416, end: 20200428
  2. PARACETAMOL [Concomitant]
     Active Substance: ACETAMINOPHEN
     Indication: PAIN
     Dosage: 1 GRAM, 3 TIMES A DAY
     Route: 042
     Dates: start: 20200416, end: 20200428
  3. ENALAPRIL [Suspect]
     Active Substance: ENALAPRIL
     Indication: HYPERTENSION
     Dosage: 5 MILLIGRAM, TWO TIMES A DAY
     Route: 048
     Dates: start: 2017, end: 20200422
  4. LINEZOLID. [Concomitant]
     Active Substance: LINEZOLID
     Indication: DIABETIC FOOT
     Dosage: 600 MILLIGRAM, TWO TIMES A DAY
     Route: 042
     Dates: start: 20200418, end: 20200421
  5. PIPERACILLIN AND TAZOBACTAM [Suspect]
     Active Substance: PIPERACILLIN SODIUM\TAZOBACTAM SODIUM
     Indication: DIABETIC FOOT
     Dosage: 4 GRAM, 3 TIMES A DAY
     Route: 042
     Dates: start: 20200416, end: 20200422

REACTIONS (1)
  - Angioedema [Recovered/Resolved]

NARRATIVE: CASE EVENT DATE: 20200422
